FAERS Safety Report 6377817-X (Version None)
Quarter: 2009Q3

REPORT INFORMATION
  Report Type: 
  Country: None (occurrence: None)
  Receive Date: 20090925
  Receipt Date: 20090916
  Transmission Date: 20100115
  Serious: Yes (Other)
  Sender: FDA-Public Use
  Company Number: NL-ELI_LILLY_AND_COMPANY-NL200909000404

PATIENT
  Sex: Male
  Weight: 136 kg

DRUGS (10)
  1. BYETTA [Suspect]
     Indication: DIABETES MELLITUS
     Dosage: 5 UG, UNK
     Route: 058
     Dates: start: 20090706, end: 20090901
  2. AMARYL [Concomitant]
     Indication: DIABETES MELLITUS
  3. METFORMIN HCL [Concomitant]
     Dosage: 500 MG, 2/D
  4. SELOKEN [Concomitant]
     Dosage: 200 D/F, UNK
  5. ATACAND [Concomitant]
     Dosage: 1 D/F, UNK
  6. MONOCEDOCARD [Concomitant]
     Dosage: 25 MG, UNK
  7. COVERSYL [Concomitant]
     Dosage: 1 D/F, UNK
  8. ACETYLSALICYLIC ACID [Concomitant]
     Dosage: 80 D/F, UNK
  9. CARDURA [Concomitant]
     Dosage: 10 MG, DAILY (1/D)
  10. NEXIUM [Concomitant]
     Dosage: 20 D/F, UNK

REACTIONS (1)
  - ARRHYTHMIA [None]
